FAERS Safety Report 13738944 (Version 1)
Quarter: 2017Q3

REPORT INFORMATION
  Report Type: Spontaneous
  Country: US (occurrence: US)
  Receive Date: 20170710
  Receipt Date: 20170710
  Transmission Date: 20171127
  Serious: No
  Sender: FDA-Public Use
  Company Number: US-SAOL THERAPEUTICS-2017SAO01047

PATIENT
  Sex: Female

DRUGS (3)
  1. BACLOFEN. [Suspect]
     Active Substance: BACLOFEN
     Indication: MUSCLE SPASTICITY
     Dosage: 110 ?G, \DAY
     Route: 037
     Dates: end: 20170203
  2. BACLOFEN. [Suspect]
     Active Substance: BACLOFEN
     Dosage: 150.1 ?G, \DAY
     Route: 037
     Dates: start: 20170427
  3. BACLOFEN. [Suspect]
     Active Substance: BACLOFEN
     Dosage: 126.3 ?G, \DAY
     Route: 037
     Dates: start: 20170203, end: 20170427

REACTIONS (7)
  - Nausea [Unknown]
  - Tremor [Unknown]
  - Malaise [Unknown]
  - Muscle spasticity [Unknown]
  - Gastrointestinal sounds abnormal [Unknown]
  - Musculoskeletal stiffness [Unknown]
  - Therapeutic response changed [Unknown]

NARRATIVE: CASE EVENT DATE: 20170224
